FAERS Safety Report 9156264 (Version 1)
Quarter: 2013Q1

REPORT INFORMATION
  Report Type: Spontaneous
  Country: US (occurrence: US)
  Receive Date: 20130115
  Receipt Date: 20130115
  Transmission Date: 20140127
  Serious: Yes (Other)
  Sender: FDA-Public Use
  Company Number: US-RB-048602-13

PATIENT
  Age: 23 Year
  Sex: Male

DRUGS (1)
  1. DELSYM ADULT ORANGE [Suspect]
     Indication: PRODUCT USED FOR UNKNOWN INDICATION
     Dosage: PATIENT DRANK THE ENTIRE 5OZ BOTTLE ON 09-JAN-2013
     Route: 048
     Dates: start: 20130109

REACTIONS (3)
  - Hallucination [Unknown]
  - Dreamy state [Unknown]
  - Overdose [Unknown]
